FAERS Safety Report 9751658 (Version 2)
Quarter: 2014Q2

REPORT INFORMATION
  Report Type: Report from Study
  Country: US (occurrence: US)
  Receive Date: 20131212
  Receipt Date: 20140523
  Transmission Date: 20141212
  Serious: Yes (Other)
  Sender: FDA-Public Use
  Company Number: US-ABBVIE-13P-163-1176496-00

PATIENT
  Age: 55 Year
  Sex: Female
  Weight: 55.39 kg

DRUGS (6)
  1. HUMIRA [Suspect]
     Indication: RHEUMATOID ARTHRITIS
     Dates: start: 2009, end: 201310
  2. ALENDRONATE [Concomitant]
     Indication: OSTEOPOROSIS
  3. CALCIUM PLUS D3 [Concomitant]
     Indication: OSTEOPOROSIS
  4. METHOTREXATE [Concomitant]
     Indication: RHEUMATOID ARTHRITIS
  5. CALCIUM [Concomitant]
     Indication: PRODUCT USED FOR UNKNOWN INDICATION
  6. FOSAMAX [Concomitant]
     Indication: PRODUCT USED FOR UNKNOWN INDICATION

REACTIONS (7)
  - Scleritis [Not Recovered/Not Resolved]
  - Osteoporosis [Not Recovered/Not Resolved]
  - Scleritis [Not Recovered/Not Resolved]
  - Cataract [Unknown]
  - Eye pain [Not Recovered/Not Resolved]
  - Scleritis [Not Recovered/Not Resolved]
  - Vision blurred [Not Recovered/Not Resolved]
